FAERS Safety Report 8199950-2 (Version None)
Quarter: 2012Q1

REPORT INFORMATION
  Report Type: 
  Country: None (occurrence: None)
  Receive Date: 20120306
  Receipt Date: 20120221
  Transmission Date: 20120608
  Serious: Yes (Hospitalization, Other)
  Sender: FDA-Public Use
  Company Number: CIP11001508

PATIENT
  Age: 58 Year
  Sex: Female
  Weight: 56.2 kg

DRUGS (9)
  1. FOSAMAX PLUS D [Suspect]
     Indication: OSTEOPOROSIS
     Dosage: ORAL
     Route: 048
  2. FOSAMAX [Suspect]
     Indication: OSTEOPOROSIS
     Dosage: ORAL, 70 MG ONCE WEEKLY
     Route: 048
     Dates: start: 20020201
  3. FOSAMAX [Suspect]
     Indication: OSTEOPOROSIS
     Dosage: ORAL, 70 MG ONCE WEEKLY
     Route: 048
     Dates: start: 20031230, end: 20080401
  4. OXYCODONE / ACETAMINOPHEN (OXYCODONE HYDROCHLORIDE, PARACETAMOL) LOVAS [Concomitant]
  5. BONIVA [Suspect]
     Indication: OSTEOPOROSIS
     Dosage: ORAL
     Route: 048
  6. NASONEX [Concomitant]
  7. ACTONEL [Suspect]
     Indication: OSTEOPOROSIS
     Dosage: 35 MG ONCE WEEKLY, ORAL
     Route: 048
     Dates: start: 20080401, end: 20090701
  8. CALCIUM +D /00188401/ (CALCIUM, ERGOCALCIFEROL) [Concomitant]
  9. CLARITIN-D [Concomitant]

REACTIONS (6)
  - FEMUR FRACTURE [None]
  - STRESS FRACTURE [None]
  - TOXICITY TO VARIOUS AGENTS [None]
  - LOW TURNOVER OSTEOPATHY [None]
  - SKELETAL INJURY [None]
  - PAIN [None]
